FAERS Safety Report 7921388-0 (Version None)
Quarter: 2011Q4

REPORT INFORMATION
  Report Type: 
  Country: None (occurrence: None)
  Receive Date: 20111117
  Receipt Date: 20111114
  Transmission Date: 20120403
  Serious: Yes (Hospitalization)
  Sender: FDA-Public Use
  Company Number: CA-ABBOTT-11P-028-0874215-00

PATIENT
  Sex: Female
  Weight: 71.278 kg

DRUGS (1)
  1. HUMIRA [Suspect]
     Indication: CROHN'S DISEASE
     Dosage: UNKNOWN
     Route: 058
     Dates: start: 20090314, end: 20110601

REACTIONS (7)
  - DRUG INEFFECTIVE [None]
  - CROHN'S DISEASE [None]
  - VOMITING [None]
  - HOSPITALISATION [None]
  - FATIGUE [None]
  - ARTHRALGIA [None]
  - DIARRHOEA [None]
